FAERS Safety Report 7965467-0 (Version None)
Quarter: 2011Q4

REPORT INFORMATION
  Report Type: 
  Country: None (occurrence: None)
  Receive Date: 20111208
  Receipt Date: 20111129
  Transmission Date: 20120403
  Serious: Yes (Other)
  Sender: FDA-Public Use
  Company Number: NL-ABBOTT-11P-114-0879987-00

PATIENT
  Sex: Female
  Weight: 67 kg

DRUGS (6)
  1. HUMIRA [Suspect]
     Indication: PSORIATIC ARTHROPATHY
     Route: 058
     Dates: start: 20100419
  2. COLECALCIFEROL [Concomitant]
     Indication: VITAMIN D DECREASED
     Dosage: DRINK - 50,000LE/ML
     Route: 048
     Dates: start: 20110101
  3. VENLAFAXINE [Concomitant]
     Indication: DEPRESSION
     Dosage: SR
     Route: 048
     Dates: start: 20070101
  4. METHOTREXATE [Concomitant]
     Indication: PSORIATIC ARTHROPATHY
     Route: 048
     Dates: start: 20050101
  5. ETORICOXIB [Concomitant]
     Indication: PSORIATIC ARTHROPATHY
     Dosage: FC
     Route: 048
     Dates: start: 20000101
  6. FOLIC ACID [Concomitant]
     Indication: PSORIATIC ARTHROPATHY
     Route: 048
     Dates: start: 20050101

REACTIONS (2)
  - PATHOLOGICAL FRACTURE [None]
  - PAIN [None]
